FAERS Safety Report 9820300 (Version 1)
Quarter: 2014Q1

REPORT INFORMATION
  Report Type: Spontaneous
  Country: CA (occurrence: CA)
  Receive Date: 20140116
  Receipt Date: 20140116
  Transmission Date: 20141002
  Serious: Yes (Hospitalization)
  Sender: FDA-Public Use
  Company Number: CA-ASTRAZENECA-2014SE01589

PATIENT
  Age: 88 Year
  Sex: Female
  Weight: 81 kg

DRUGS (8)
  1. SEROQUEL [Suspect]
     Route: 048
  2. ABILIFY [Suspect]
     Route: 048
  3. ATORVASTATIN [Concomitant]
     Route: 048
  4. COUMADIN [Concomitant]
     Route: 048
  5. NORPROLAC [Concomitant]
     Route: 048
  6. TRAZODONE [Concomitant]
     Route: 048
  7. SYNTHROID [Concomitant]
     Route: 065
  8. VENLAFAXINE XR [Concomitant]
     Route: 048

REACTIONS (7)
  - Cognitive disorder [Recovered/Resolved]
  - Cold sweat [Recovered/Resolved]
  - Respiratory disorder [Recovered/Resolved]
  - Grimacing [Recovered/Resolved]
  - Neuroleptic malignant syndrome [Recovered/Resolved]
  - Restlessness [Recovered/Resolved]
  - Tremor [Recovered/Resolved]
